FAERS Safety Report 5030090-7 (Version None)
Quarter: 2006Q2

REPORT INFORMATION
  Report Type: 
  Country: None (occurrence: None)
  Receive Date: 20060614
  Receipt Date: 20060525
  Transmission Date: 20061013
  Serious: Yes (Other)
  Sender: FDA-Public Use
  Company Number: 2006056616

PATIENT
  Age: 66 Year
  Sex: Female

DRUGS (4)
  1. BEXTRA [Suspect]
     Indication: FIBROMYALGIA
     Dosage: 10 MG (10 MG, 1 IN 1 D)
     Dates: start: 20050228, end: 20050505
  2. CELEBREX [Suspect]
     Indication: FIBROMYALGIA
     Dosage: 200 MG
     Dates: start: 20040228, end: 20050101
  3. SYNTHROID [Concomitant]
  4. AMBIEN [Concomitant]

REACTIONS (8)
  - ASTHENIA [None]
  - DEPRESSION [None]
  - DRUG HYPERSENSITIVITY [None]
  - EYELID OEDEMA [None]
  - FATIGUE [None]
  - HYPOAESTHESIA [None]
  - NEURODERMATITIS [None]
  - ORAL MUCOSAL BLISTERING [None]
